FAERS Safety Report 5610991-9 (Version None)
Quarter: 2008Q1

REPORT INFORMATION
  Report Type: 
  Country: None (occurrence: None)
  Receive Date: 20080201
  Receipt Date: 20080125
  Transmission Date: 20080703
  Serious: Yes (Other)
  Sender: FDA-Public Use
  Company Number: A0698434A

PATIENT
  Age: 48 Year
  Sex: Male
  Weight: 81.8 kg

DRUGS (3)
  1. BUPROPION HYDROCHLORIDE [Suspect]
     Indication: DRUG USE FOR UNKNOWN INDICATION
     Dosage: 300MG UNKNOWN
     Route: 048
     Dates: start: 20070911, end: 20070919
  2. AMBIEN [Concomitant]
     Dosage: 10MG AT NIGHT
     Route: 048
  3. XANAX [Concomitant]
     Dosage: .5MG THREE TIMES PER DAY

REACTIONS (2)
  - ADVERSE EVENT [None]
  - DRUG INEFFECTIVE [None]
